FAERS Safety Report 8489344-4 (Version None)
Quarter: 2012Q3

REPORT INFORMATION
  Report Type: 
  Country: None (occurrence: None)
  Receive Date: 20120705
  Receipt Date: 20120629
  Transmission Date: 20120928
  Serious: No
  Sender: FDA-Public Use
  Company Number: US-PFIZER INC-2012157070

PATIENT
  Sex: Female
  Weight: 100 kg

DRUGS (4)
  1. PREDNISONE [Suspect]
     Indication: CYANOSIS
  2. PREDNISONE [Suspect]
     Indication: VASCULITIS
  3. VIBRAMYCIN [Suspect]
     Indication: VICTIM OF SEXUAL ABUSE
     Dosage: 100 MG, 2X/DAY
     Dates: start: 20120101, end: 20120607
  4. PREDNISONE [Suspect]
     Indication: PAIN
     Dosage: UNK
     Dates: start: 20120611, end: 20120601

REACTIONS (6)
  - FEELING ABNORMAL [None]
  - CYANOSIS [None]
  - THIRST [None]
  - VASCULITIS [None]
  - PAIN [None]
  - DRUG INEFFECTIVE [None]
